FAERS Safety Report 5919017-0 (Version None)
Quarter: 2008Q4

REPORT INFORMATION
  Report Type: 
  Country: None (occurrence: None)
  Receive Date: 20081015
  Receipt Date: 20081006
  Transmission Date: 20090506
  Serious: Yes (Other)
  Sender: FDA-Public Use
  Company Number: FR-ASTRAZENECA-2008CG00478

PATIENT
  Age: 920 Month
  Sex: Female

DRUGS (2)
  1. FASLODEX [Suspect]
     Indication: BREAST CANCER RECURRENT
     Route: 030
     Dates: start: 20070501, end: 20071213
  2. ARIMIDEX [Concomitant]
     Indication: BREAST CANCER FEMALE
     Route: 048

REACTIONS (1)
  - NERVOUS SYSTEM DISORDER [None]
